FAERS Safety Report 5880171-0 (Version None)
Quarter: 2008Q3

REPORT INFORMATION
  Report Type: 
  Country: None (occurrence: None)
  Receive Date: 20080912
  Receipt Date: 20080902
  Transmission Date: 20090109
  Serious: Yes (Death, Hospitalization)
  Sender: FDA-Public Use
  Company Number: SE-PFIZER INC-2008073894

PATIENT
  Sex: Male

DRUGS (4)
  1. DIFLUCAN [Suspect]
     Indication: CANDIDIASIS
  2. ECALTA [Suspect]
     Indication: CANDIDIASIS
     Dates: start: 20080801, end: 20080827
  3. VFEND [Suspect]
     Indication: CANDIDIASIS
     Dates: start: 20080827
  4. ANTIBIOTICS [Concomitant]

REACTIONS (1)
  - MULTI-ORGAN FAILURE [None]
